FAERS Safety Report 17045248 (Version 5)
Quarter: 2021Q3

REPORT INFORMATION
  Report Type: Report from Study
  Country: BG (occurrence: BG)
  Receive Date: 20191118
  Receipt Date: 20210820
  Transmission Date: 20211014
  Serious: Yes (Hospitalization)
  Sender: FDA-Public Use
  Company Number: BG-MYLANLABS-2019M1109929

PATIENT
  Age: 51 Year
  Sex: Female
  Weight: 75 kg

DRUGS (7)
  1. TRASTUZUMAB. [Suspect]
     Active Substance: TRASTUZUMAB
     Dosage: 450 MILLIGRAM, Q2W (450 MILLIGRAM, Q3W)
     Route: 041
     Dates: start: 20181121
  2. PERTUZUMAB. [Suspect]
     Active Substance: PERTUZUMAB
     Indication: HER2 POSITIVE BREAST CANCER
     Dosage: 420 MILLIGRAM, Q3W
     Route: 042
     Dates: start: 20181121
  3. DOCETAXEL. [Suspect]
     Active Substance: DOCETAXEL
     Indication: HER2 POSITIVE BREAST CANCER
     Dosage: 160 MILLIGRAM, Q3W
     Route: 042
     Dates: start: 20181121
  4. TAXOTERE [Suspect]
     Active Substance: DOCETAXEL
     Indication: HER2 POSITIVE BREAST CANCER
     Dosage: 160 MILLIGRAM, Q3W
     Route: 042
     Dates: start: 20181121
  5. TRASTUZUMAB. [Suspect]
     Active Substance: TRASTUZUMAB
     Indication: HER2 POSITIVE BREAST CANCER
     Dosage: 450 MILLIGRAM, Q3W
     Route: 041
     Dates: start: 20181121
  6. PERTUZUMAB. [Suspect]
     Active Substance: PERTUZUMAB
     Dosage: 420 MILLIGRAM, Q2W (420 MILLIGRAM, Q3W)
     Route: 042
     Dates: start: 20181121
  7. TAXOTERE [Suspect]
     Active Substance: DOCETAXEL
     Dosage: 160 MILLIGRAM, Q2W (160 MILLIGRAM, Q3W)
     Route: 042
     Dates: start: 20181121

REACTIONS (2)
  - Febrile neutropenia [Recovered/Resolved with Sequelae]
  - Colitis ischaemic [Recovered/Resolved with Sequelae]

NARRATIVE: CASE EVENT DATE: 20181126
